FAERS Safety Report 4340236-1 (Version None)
Quarter: 2004Q1

REPORT INFORMATION
  Report Type: 
  Country: None (occurrence: None)
  Receive Date: 20040329
  Receipt Date: 20040105
  Transmission Date: 20041129
  Serious: No
  Sender: FDA-Public Use
  Company Number: 04P-163-0246126-00

PATIENT
  Age: 84 Year
  Sex: Male
  Weight: 74.8435 kg

DRUGS (5)
  1. HUMIRA [Suspect]
     Indication: RHEUMATOID ARTHRITIS
     Dosage: 40 MG, 1 IN 2 WK, SUBCUTANEOUS
     Route: 058
     Dates: start: 20030301
  2. TOCOPHEROL CONCENTRATE CAP [Concomitant]
  3. ASCORBIC ACID [Concomitant]
  4. PYRIDOXINE HYDROCHLORIDE [Concomitant]
  5. PRANDIZONE [Concomitant]

REACTIONS (1)
  - PRURITUS [None]
